FAERS Safety Report 24775236 (Version 1)
Quarter: 2024Q4

REPORT INFORMATION
  Report Type: Spontaneous
  Country: US (occurrence: US)
  Receive Date: 20241226
  Receipt Date: 20241226
  Transmission Date: 20250114
  Serious: No
  Sender: NOVARTIS
  Company Number: US-002147023-NVSC2024US244506

PATIENT
  Age: 67 Year
  Sex: Male
  Weight: 102 kg

DRUGS (1)
  1. LEQVIO [Suspect]
     Active Substance: INCLISIRAN SODIUM
     Indication: Low density lipoprotein decreased
     Dosage: 184 MG (INITIAL, THEN 90 DAYS LATER, 6 MONTHS AFTER THAT)
     Route: 058
     Dates: start: 20241031, end: 20241224

REACTIONS (2)
  - Injection site pain [Recovered/Resolved]
  - Myalgia [Recovered/Resolved]

NARRATIVE: CASE EVENT DATE: 20241031
